FAERS Safety Report 19736024 (Version 1)
Quarter: 2021Q3

REPORT INFORMATION
  Report Type: Report from Study
  Country: BR (occurrence: BR)
  Receive Date: 20210823
  Receipt Date: 20210823
  Transmission Date: 20211014
  Serious: Yes (Other)
  Sender: FDA-Public Use
  Company Number: NVSC2021BR186960

PATIENT
  Age: 85 Year
  Sex: Female

DRUGS (1)
  1. ENTRESTO [Suspect]
     Active Substance: SACUBITRIL\VALSARTAN
     Indication: PRODUCT USED FOR UNKNOWN INDICATION
     Dosage: UNK (49/51)
     Route: 065

REACTIONS (6)
  - Drug dependence [Unknown]
  - COVID-19 [Unknown]
  - Dysarthria [Unknown]
  - Ischaemic stroke [Unknown]
  - Cardiac disorder [Unknown]
  - Psychotic disorder [Unknown]
